FAERS Safety Report 5163398-5 (Version None)
Quarter: 2006Q4

REPORT INFORMATION
  Report Type: 
  Country: None (occurrence: None)
  Receive Date: 20061204
  Receipt Date: 20061122
  Transmission Date: 20070319
  Serious: Yes (Other)
  Sender: FDA-Public Use
  Company Number: PHBS2006BR18265

PATIENT
  Age: 31 Year
  Sex: Female

DRUGS (3)
  1. BRONDILAT [Concomitant]
     Indication: COUGH
     Dosage: 10 ML, BID
     Route: 048
  2. INHALATION [Concomitant]
     Indication: ASTHMA
  3. ZADITEN [Suspect]
     Indication: ASTHMA
     Dosage: 1 MG, BID
     Route: 048
     Dates: start: 20061122

REACTIONS (3)
  - LAZINESS [None]
  - SEDATION [None]
  - SOMNOLENCE [None]
